FAERS Safety Report 5859322-X (Version None)
Quarter: 2008Q3

REPORT INFORMATION
  Report Type: 
  Country: None (occurrence: None)
  Receive Date: 20080826
  Receipt Date: 20080826
  Transmission Date: 20090109
  Serious: Yes (Hospitalization)
  Sender: FDA-Public Use
  Company Number: None

PATIENT
  Age: 54 Year
  Sex: Male

DRUGS (2)
  1. OXYCODONE AND ACETAMINOPHEN [Suspect]
     Dosage: 5-15 MG QID PO
     Route: 048
     Dates: start: 19990720, end: 20080519
  2. MORPHINE [Suspect]
     Dosage: 500 MG QID PO
     Route: 048
     Dates: start: 20051216, end: 20080519

REACTIONS (2)
  - HALLUCINATIONS, MIXED [None]
  - PSYCHOTIC DISORDER [None]
